FAERS Safety Report 7285957-6 (Version None)
Quarter: 2011Q1

REPORT INFORMATION
  Report Type: 
  Country: None (occurrence: None)
  Receive Date: 20110210
  Receipt Date: 20110201
  Transmission Date: 20110831
  Serious: Yes (Other)
  Sender: FDA-Public Use
  Company Number: US-SANOFI-AVENTIS-2011SA006681

PATIENT
  Age: 69 Year
  Sex: Male

DRUGS (4)
  1. UROXATRAL [Suspect]
     Indication: BENIGN PROSTATIC HYPERPLASIA
     Route: 048
     Dates: start: 20060101
  2. BETAPACE [Concomitant]
     Indication: ATRIAL FIBRILLATION
  3. DUTASTERIDE [Concomitant]
     Indication: BENIGN PROSTATIC HYPERPLASIA
  4. COUMADIN [Concomitant]

REACTIONS (1)
  - ATRIAL FIBRILLATION [None]
